FAERS Safety Report 10074936 (Version 1)
Quarter: 2014Q2

REPORT INFORMATION
  Report Type: Other
  Country: GB (occurrence: GB)
  Receive Date: 20140414
  Receipt Date: 20140414
  Transmission Date: 20141212
  Serious: Yes (Other)
  Sender: FDA-Public Use
  Company Number: GB-SUN PHARMACEUTICAL INDUSTRIES LTD-2014SUN00756

PATIENT
  Age: 80 Year
  Sex: Female

DRUGS (7)
  1. OCTREOTIDE 50MICROGRAMS / ML SOLUTION FOR INJECTION [Suspect]
     Indication: PALLIATIVE CARE
     Dosage: UNK
     Route: 058
     Dates: start: 20140319, end: 20140320
  2. CYCLIZINE [Suspect]
     Indication: PALLIATIVE CARE
     Dosage: 50 MG, INFUSED OVER 24 HOURS
     Route: 058
     Dates: start: 20140319, end: 20140320
  3. DOCUSATE [Concomitant]
     Indication: CONSTIPATION
     Route: 048
  4. SEVREDOL [Concomitant]
     Indication: ANALGESIC THERAPY
  5. CLONAZEPAM [Concomitant]
  6. FENTANYL [Concomitant]
     Indication: ANALGESIC THERAPY
  7. TINZAPARIN [Concomitant]
     Indication: EMBOLISM VENOUS
     Route: 058

REACTIONS (4)
  - Muscle spasms [Recovering/Resolving]
  - Muscle tightness [Unknown]
  - Infusion related reaction [Unknown]
  - Off label use [Unknown]
